FAERS Safety Report 11252736 (Version 3)
Quarter: 2016Q3

REPORT INFORMATION
  Report Type: Spontaneous
  Country: US (occurrence: US)
  Receive Date: 20150708
  Receipt Date: 20160822
  Transmission Date: 20161109
  Serious: Yes (Death, Other)
  Sender: FDA-Public Use
  Company Number: US-JNJFOC-20150704630

PATIENT
  Age: 66 Year
  Sex: Male
  Weight: 68.04 kg

DRUGS (1)
  1. XARELTO [Suspect]
     Active Substance: RIVAROXABAN
     Indication: ANTICOAGULANT THERAPY
     Route: 048
     Dates: start: 201306, end: 201310

REACTIONS (4)
  - Cerebral haemorrhage [Unknown]
  - Internal haemorrhage [Unknown]
  - Thrombosis [Unknown]
  - Death [Fatal]

NARRATIVE: CASE EVENT DATE: 20130901
